FAERS Safety Report 9607441 (Version 1)
Quarter: 2013Q4

REPORT INFORMATION
  Report Type: Spontaneous
  Country: US (occurrence: None)
  Receive Date: 20131004
  Receipt Date: 20131004
  Transmission Date: 20140711
  Serious: Yes (Hospitalization)
  Sender: FDA-Public Use
  Company Number: 2013SA096041

PATIENT
  Age: 27 Year
  Sex: Male

DRUGS (5)
  1. NAPROXEN [Suspect]
     Indication: HEADACHE
  2. ACETYLSALICYLIC ACID/ CAFFEINE/ PARACETAMOL [Suspect]
     Indication: PRODUCT USED FOR UNKNOWN INDICATION
     Route: 048
  3. KETOROLAC [Concomitant]
  4. ASPIRIN [Concomitant]
  5. ACETYLSALICYLIC ACID/ CAFFEINE/ PARACETAMOL [Concomitant]

REACTIONS (1)
  - Respiratory disorder [None]
